FAERS Safety Report 9333254 (Version 2)
Quarter: 2013Q4

REPORT INFORMATION
  Report Type: Spontaneous
  Country: US (occurrence: US)
  Receive Date: 20130606
  Receipt Date: 20131101
  Transmission Date: 20140711
  Serious: Yes (Hospitalization, Other)
  Sender: FDA-Public Use
  Company Number: US-BAYER-2013-065966

PATIENT
  Age: 22 Year
  Sex: Female
  Weight: 68 kg

DRUGS (4)
  1. MIRENA [Suspect]
     Indication: CONTRACEPTION
     Dosage: 20 MCG/DL, CONT
     Route: 015
     Dates: start: 20110520, end: 20110602
  2. MIRENA [Suspect]
     Indication: CONTRACEPTION
     Dosage: 20 MCG/DL, CONT
     Route: 015
     Dates: start: 200807
  3. PITOCIN [Concomitant]
  4. LIDOCAINE [Concomitant]

REACTIONS (12)
  - Uterine perforation [None]
  - Vaginal haemorrhage [None]
  - Internal injury [None]
  - Pelvic pain [None]
  - Device issue [None]
  - Injury [None]
  - Pain [None]
  - Lactation disorder [None]
  - Mental disorder [None]
  - Emotional distress [None]
  - Depression [None]
  - Anxiety [None]
